FAERS Safety Report 21993768 (Version 3)
Quarter: 2023Q2

REPORT INFORMATION
  Report Type: Spontaneous
  Country: US (occurrence: US)
  Receive Date: 20230215
  Receipt Date: 20230421
  Transmission Date: 20230722
  Serious: Yes (Other)
  Sender: FDA-Public Use
  Company Number: US-SA-SAC20230214001040

PATIENT
  Age: 56 Year
  Sex: Female

DRUGS (1)
  1. DUPIXENT [Suspect]
     Active Substance: DUPILUMAB
     Dosage: 300 MG, OTHER
     Route: 058

REACTIONS (6)
  - Non-small cell lung cancer [Unknown]
  - Lung neoplasm [Unknown]
  - Illness [Unknown]
  - Psoriasis [Recovering/Resolving]
  - Stress [Unknown]
  - Dry eye [Unknown]
